FAERS Safety Report 5137867-8 (Version None)
Quarter: 2006Q4

REPORT INFORMATION
  Report Type: 
  Country: None (occurrence: None)
  Receive Date: 20061030
  Receipt Date: 20060130
  Transmission Date: 20070319
  Serious: No
  Sender: FDA-Public Use
  Company Number: US-GLAXOSMITHKLINE-A0591502A

PATIENT
  Age: 82 Year
  Sex: Male

DRUGS (7)
  1. ADVAIR HFA [Suspect]
     Indication: CHRONIC OBSTRUCTIVE PULMONARY DISEASE
     Dosage: 2PUFF TWICE PER DAY
     Route: 055
  2. ARICEPT [Concomitant]
  3. FEXOFENADINE [Concomitant]
  4. ACETAMINOPHEN [Concomitant]
  5. FLONASE [Concomitant]
  6. IBUPROFEN [Concomitant]
  7. FLUOXETINE [Concomitant]

REACTIONS (1)
  - DYSPHONIA [None]
